FAERS Safety Report 7074129-6 (Version None)
Quarter: 2010Q4

REPORT INFORMATION
  Report Type: 
  Country: None (occurrence: None)
  Receive Date: 20101029
  Receipt Date: 20101022
  Transmission Date: 20110411
  Serious: Yes (Death, Life-Threatening)
  Sender: FDA-Public Use
  Company Number: FR-PFIZER INC-2008059200

PATIENT
  Age: 52 Year
  Sex: Female

DRUGS (5)
  1. CAMPTOSAR [Suspect]
     Indication: METASTATIC GASTRIC CANCER
     Dosage: UNK
     Route: 042
     Dates: start: 20080401
  2. FLUOROURACIL [Suspect]
     Indication: METASTATIC GASTRIC CANCER
     Dosage: UNK
     Route: 042
     Dates: start: 20080401
  3. ELOXATIN [Suspect]
     Indication: METASTATIC GASTRIC CANCER
     Dosage: UNK
     Route: 042
     Dates: start: 20070313, end: 20080327
  4. CALCIUM FOLINATE [Suspect]
     Indication: METASTATIC GASTRIC CANCER
     Dosage: UNK
     Route: 042
     Dates: start: 20080415
  5. PARACETAMOL [Concomitant]

REACTIONS (3)
  - HAEMOLYTIC ANAEMIA [None]
  - HAEMOLYTIC URAEMIC SYNDROME [None]
  - THROMBOCYTOPENIA [None]
